FAERS Safety Report 19654128 (Version 1)
Quarter: 2021Q3

REPORT INFORMATION
  Report Type: Report from Study
  Country: None (occurrence: IL)
  Receive Date: 20210804
  Receipt Date: 20210804
  Transmission Date: 20211014
  Serious: Yes (Other)
  Sender: FDA-Public Use
  Company Number: IL-ABBVIE-20K-082-3426240-00

PATIENT
  Sex: Male

DRUGS (9)
  1. DUODOPA [Suspect]
     Active Substance: CARBIDOPA\LEVODOPA
     Dosage: MORNING DOSAGE 11.0 (ML) , CONTINUOUS DOSAGE 3.6 (ML/H) , EXTRA DOSAGE 2.5(ML)
     Route: 050
  2. DUODOPA [Suspect]
     Active Substance: CARBIDOPA\LEVODOPA
     Indication: PARKINSON^S DISEASE
     Dosage: CURRENT: MORNING DOSE 11.5ML, CONTINUOUS RATE 2.9ML, EXTRA DOSE 2.5ML
     Route: 050
     Dates: start: 20170827
  3. DUODOPA [Suspect]
     Active Substance: CARBIDOPA\LEVODOPA
     Dosage: MD 11.5(ML) , CD 2.9(ML/H) , ED (2.5(ML)
     Route: 050
  4. DUODOPA [Suspect]
     Active Substance: CARBIDOPA\LEVODOPA
     Dosage: CONTINUES DOSE WAS RETURNED TO 3.6
     Route: 050
  5. DUODOPA [Suspect]
     Active Substance: CARBIDOPA\LEVODOPA
     Dosage: MORNING DOSE 10.5, CONTINUOUS DOSE 3.4
     Route: 050
  6. DUODOPA [Suspect]
     Active Substance: CARBIDOPA\LEVODOPA
     Dosage: CONTINUOUS DOSE WAS INCREASED TO 3.7
     Route: 050
  7. DUODOPA [Suspect]
     Active Substance: CARBIDOPA\LEVODOPA
     Dosage: MD 11.0 (ML) , CD 3.6 (ML/H) , ED 2.5(ML)
     Route: 050
  8. DUODOPA [Suspect]
     Active Substance: CARBIDOPA\LEVODOPA
     Dosage: MORNING DOSAGE 11.5(ML) , CONTINUOUS DOSAGE 2.9(ML/H) , EXTRA DOSAGE 2.5(ML)
     Route: 050
  9. DUODOPA [Suspect]
     Active Substance: CARBIDOPA\LEVODOPA
     Dosage: NO MORNING DOSAGE
     Route: 050

REACTIONS (17)
  - Dysstasia [Unknown]
  - Initial insomnia [Unknown]
  - Asthenia [Not Recovered/Not Resolved]
  - Haemoglobin decreased [Unknown]
  - Poor quality sleep [Unknown]
  - Nervous system disorder [Recovering/Resolving]
  - Dyskinesia [Not Recovered/Not Resolved]
  - Cognitive disorder [Recovering/Resolving]
  - Gait disturbance [Recovered/Resolved]
  - Dyskinesia [Recovering/Resolving]
  - Hypersomnia [Not Recovered/Not Resolved]
  - Gait disturbance [Unknown]
  - Fatigue [Not Recovered/Not Resolved]
  - Occult blood positive [Unknown]
  - Device leakage [Not Recovered/Not Resolved]
  - Asthenia [Recovered/Resolved]
  - Constipation [Unknown]
